FAERS Safety Report 9198888 (Version 1)
Quarter: 2013Q1

REPORT INFORMATION
  Report Type: Spontaneous
  Country: CN (occurrence: CN)
  Receive Date: 20130329
  Receipt Date: 20130329
  Transmission Date: 20140127
  Serious: Yes (Other)
  Sender: FDA-Public Use
  Company Number: PHHY2013CN027235

PATIENT
  Sex: Male

DRUGS (6)
  1. TACROLIMUS [Suspect]
     Dosage: 5 MG, PER DAY
  2. TACROLIMUS [Suspect]
     Dosage: 3 MG, PER DAY
  3. MYCOPHENOLATE MOFETIL [Suspect]
  4. PREDNISONE [Suspect]
     Dosage: 5 MG, PER DAY
  5. METHYLPREDNISOLONE [Suspect]
     Dosage: 800 MG, DAY
  6. ANTITHYMOCYTE IMMUNOGLOBULIN [Suspect]
     Dosage: 80 MG, PER DAY

REACTIONS (6)
  - Serum sickness [Recovering/Resolving]
  - Transplant rejection [Unknown]
  - Hyperglycaemia [Recovering/Resolving]
  - Transaminases increased [Recovering/Resolving]
  - Rash maculo-papular [Unknown]
  - Erythema [Unknown]
